FAERS Safety Report 26179320 (Version 1)
Quarter: 2025Q4

REPORT INFORMATION
  Report Type: Report from Study
  Country: US (occurrence: US)
  Receive Date: 20251219
  Receipt Date: 20251219
  Transmission Date: 20260118
  Serious: Yes (Other)
  Sender: TAKEDA
  Company Number: US-TAKEDA-2025TUS102560

PATIENT
  Age: 34 Year
  Sex: Male

DRUGS (2)
  1. MARIBAVIR [Suspect]
     Active Substance: MARIBAVIR
     Indication: Cytomegalovirus infection
     Dosage: UNK UNK, BID
     Dates: start: 20251031
  2. MARIBAVIR [Suspect]
     Active Substance: MARIBAVIR
     Indication: Leukopenia
     Dosage: 400 MILLIGRAM, BID
     Dates: start: 20251102

REACTIONS (3)
  - Parosmia [Unknown]
  - Taste disorder [Unknown]
  - Viral load increased [Recovered/Resolved]
